FAERS Safety Report 20226543 (Version 1)
Quarter: 2021Q4

REPORT INFORMATION
  Report Type: Spontaneous
  Country: CN (occurrence: None)
  Receive Date: 20211224
  Receipt Date: 20211224
  Transmission Date: 20220303
  Serious: Yes (Other)
  Sender: FDA-Public Use
  Company Number: CN-ROCHE-2981596

PATIENT
  Age: 31 Year
  Sex: Female

DRUGS (19)
  1. AVASTIN [Suspect]
     Active Substance: BEVACIZUMAB
     Indication: Rectosigmoid cancer
     Route: 065
     Dates: start: 20210928
  2. AVASTIN [Suspect]
     Active Substance: BEVACIZUMAB
     Route: 065
     Dates: start: 20211103
  3. AVASTIN [Suspect]
     Active Substance: BEVACIZUMAB
     Route: 065
     Dates: start: 20211126
  4. XELODA [Suspect]
     Active Substance: CAPECITABINE
     Indication: Rectosigmoid cancer
     Route: 065
  5. LEUCOVORIN CALCIUM [Suspect]
     Active Substance: LEUCOVORIN CALCIUM
     Indication: Rectosigmoid cancer
     Route: 065
     Dates: start: 20210826
  6. LEUCOVORIN CALCIUM [Suspect]
     Active Substance: LEUCOVORIN CALCIUM
     Route: 065
     Dates: start: 20210928
  7. LEUCOVORIN CALCIUM [Suspect]
     Active Substance: LEUCOVORIN CALCIUM
     Route: 065
     Dates: start: 20211103
  8. LEUCOVORIN CALCIUM [Suspect]
     Active Substance: LEUCOVORIN CALCIUM
     Route: 065
     Dates: start: 20211126
  9. FLUOROURACIL [Suspect]
     Active Substance: FLUOROURACIL
     Indication: Rectosigmoid cancer
     Route: 065
     Dates: start: 20210826
  10. FLUOROURACIL [Suspect]
     Active Substance: FLUOROURACIL
     Route: 065
     Dates: start: 20210928
  11. FLUOROURACIL [Suspect]
     Active Substance: FLUOROURACIL
     Route: 065
     Dates: start: 20211103
  12. FLUOROURACIL [Suspect]
     Active Substance: FLUOROURACIL
     Route: 065
     Dates: start: 20211126
  13. IRINOTECAN [Suspect]
     Active Substance: IRINOTECAN
     Indication: Rectosigmoid cancer
     Route: 065
     Dates: start: 20210826
  14. IRINOTECAN [Suspect]
     Active Substance: IRINOTECAN
     Route: 065
     Dates: start: 20210928
  15. IRINOTECAN [Suspect]
     Active Substance: IRINOTECAN
     Route: 065
     Dates: start: 20211103
  16. IRINOTECAN [Suspect]
     Active Substance: IRINOTECAN
     Route: 065
     Dates: start: 20211126
  17. OXALIPLATIN [Concomitant]
     Active Substance: OXALIPLATIN
  18. DOCETAXEL [Concomitant]
     Active Substance: DOCETAXEL
     Indication: Rectosigmoid cancer
     Route: 033
  19. CISPLATIN [Concomitant]
     Active Substance: CISPLATIN
     Indication: Rectosigmoid cancer
     Route: 033

REACTIONS (4)
  - Arrhythmia [Unknown]
  - Hot flush [Unknown]
  - Palpitations [Unknown]
  - Vertigo [Unknown]
